FAERS Safety Report 19603641 (Version 1)
Quarter: 2021Q3

REPORT INFORMATION
  Report Type: Report from Study
  Country: FR (occurrence: FR)
  Receive Date: 20210724
  Receipt Date: 20210724
  Transmission Date: 20211014
  Serious: Yes (Hospitalization, Other)
  Sender: FDA-Public Use
  Company Number: FR-BION-009960

PATIENT
  Age: 9 Year
  Sex: Male

DRUGS (3)
  1. LEVOMEPROMAZINE [Interacting]
     Active Substance: LEVOMEPROMAZINE
     Indication: SCHIZOPHRENIA
  2. FLUVOXAMINE [Suspect]
     Active Substance: FLUVOXAMINE
     Indication: SCHIZOPHRENIA
  3. CLOZAPINE. [Interacting]
     Active Substance: CLOZAPINE
     Indication: SCHIZOPHRENIA

REACTIONS (6)
  - Product use in unapproved indication [Not Recovered/Not Resolved]
  - Drug intolerance [Unknown]
  - Electrocardiogram QT prolonged [Unknown]
  - Sedation [Unknown]
  - Drug interaction [Unknown]
  - Overdose [Not Recovered/Not Resolved]
